FAERS Safety Report 6682946-7 (Version None)
Quarter: 2010Q2

REPORT INFORMATION
  Report Type: 
  Country: None (occurrence: None)
  Receive Date: 20100415
  Receipt Date: 20100412
  Transmission Date: 20101027
  Serious: Yes (Other)
  Sender: FDA-Public Use
  Company Number: NZ-ROXANE LABORATORIES, INC.-2010-RO-00402RO

PATIENT
  Age: 7 Year
  Sex: Female

DRUGS (5)
  1. MORPHINE [Suspect]
     Indication: MAINTENANCE OF ANAESTHESIA
  2. PROPOFOL [Suspect]
     Indication: INDUCTION OF ANAESTHESIA
  3. ATRACURIUM BESYLATE [Suspect]
     Indication: NEUROMUSCULAR BLOCKADE
  4. HALOTHANE [Suspect]
     Indication: MAINTENANCE OF ANAESTHESIA
  5. NITRIC OXIDE [Suspect]
     Indication: MAINTENANCE OF ANAESTHESIA

REACTIONS (1)
  - HYPOXIA [None]
